FAERS Safety Report 20642944 (Version 1)
Quarter: 2022Q1

REPORT INFORMATION
  Report Type: Report from Study
  Country: US (occurrence: US)
  Receive Date: 20220328
  Receipt Date: 20220328
  Transmission Date: 20220424
  Serious: Yes (Other)
  Sender: FDA-Public Use
  Company Number: US-UCBSA-2022016453

PATIENT
  Age: 29 Year
  Sex: Female
  Weight: 57.6 kg

DRUGS (21)
  1. CERTOLIZUMAB PEGOL [Suspect]
     Active Substance: CERTOLIZUMAB PEGOL
     Indication: Ankylosing spondylitis
     Dosage: 400 MILLIGRAM, EV 2 WEEKS(QOW)
     Route: 058
     Dates: start: 20180327, end: 20180423
  2. CERTOLIZUMAB PEGOL [Suspect]
     Active Substance: CERTOLIZUMAB PEGOL
     Dosage: 400 MILLIGRAM, EV 2 WEEKS(QOW)
     Route: 058
     Dates: start: 20180507, end: 20181126
  3. ASPIRIN [Concomitant]
     Active Substance: ASPIRIN
     Indication: Thrombosis prophylaxis
     Dosage: 81 MILLIGRAM, ONCE DAILY (QD)
     Route: 048
     Dates: start: 20180711, end: 20181126
  4. AZITHROMYCIN [Concomitant]
     Active Substance: AZITHROMYCIN
     Indication: Chlamydial infection
     Dosage: 500 MILLIGRAM X2TOTAL
     Route: 048
     Dates: start: 20180401, end: 20180410
  5. BACLOFEN [Concomitant]
     Active Substance: BACLOFEN
     Indication: Ankylosing spondylitis
     Dosage: 10 MILLIGRAM, ONCE DAILY (QD)
     Route: 048
     Dates: start: 20180320, end: 20180320
  6. DIETARY SUPPLEMENT [Concomitant]
     Active Substance: DIETARY SUPPLEMENT
     Indication: Product used for unknown indication
     Dosage: 2PILL X1 DAY
     Route: 048
     Dates: start: 20171201, end: 20181126
  7. DOCUSATE [Concomitant]
     Active Substance: DOCUSATE
     Indication: Constipation
     Dosage: 200 MILLIGRAM, EV 3 WEEKS
     Route: 048
     Dates: start: 20180215, end: 20181015
  8. INFLUENZA VIRUS VACCINE [Concomitant]
     Active Substance: INFLUENZA VIRUS VACCINE
     Indication: Immunisation
     Dosage: 1 SHOT A DAY
     Dates: start: 20180916, end: 20180916
  9. NORCO [Concomitant]
     Active Substance: ACETAMINOPHEN\HYDROCODONE BITARTRATE
     Indication: Ankylosing spondylitis
     Dosage: 5 MILLIGRAM, ONCE DAILY (QD)
     Route: 048
     Dates: start: 20180323, end: 20180323
  10. MINERALS\VITAMINS [Concomitant]
     Active Substance: MINERALS\VITAMINS
     Indication: Product used for unknown indication
     Dosage: 2 PILLXDAY
     Route: 048
     Dates: start: 20171201, end: 20181126
  11. PROMETHAZINE [Concomitant]
     Active Substance: PROMETHAZINE HYDROCHLORIDE
     Indication: Gastroenteritis viral
     Dosage: 25 MILLIGRAM, ONCE DAILY (QD)
     Route: 048
     Dates: start: 20180302, end: 20180302
  12. PROMETHAZINE [Concomitant]
     Active Substance: PROMETHAZINE HYDROCHLORIDE
     Dosage: 25 MILLIGRAM X 5TOTAL
     Route: 048
     Dates: start: 20180104, end: 20180511
  13. SIMPONI [Concomitant]
     Active Substance: GOLIMUMAB
     Indication: Ankylosing spondylitis
     Dosage: 50 MILLIGRAM, EV 30 DAYS
     Route: 058
     Dates: start: 20160715, end: 20180227
  14. TETANUS TOXOID, REDUCED DIPHTHERIA TOXOID AND ACELLULAR PERTUSSIS VACC [Concomitant]
     Active Substance: TETANUS TOXOID, REDUCED DIPHTHERIA TOXOID AND ACELLULAR PERTUSSIS VACCINE ADSORBED, TDAP
     Indication: Product used for unknown indication
     Dosage: 1 SHOT X  DAY
     Route: 030
     Dates: start: 20130701, end: 20130701
  15. TETANUS TOXOID, REDUCED DIPHTHERIA TOXOID AND ACELLULAR PERTUSSIS VACC [Concomitant]
     Active Substance: TETANUS TOXOID, REDUCED DIPHTHERIA TOXOID AND ACELLULAR PERTUSSIS VACCINE ADSORBED, TDAP
     Dosage: 1 SHOT X  DAY
     Route: 030
     Dates: start: 20180920, end: 20180920
  16. TUMS [Concomitant]
     Active Substance: CALCIUM CARBONATE
     Indication: Dyspepsia
     Dosage: 1.5PILL
     Route: 048
     Dates: start: 20180726, end: 20181015
  17. TUMS [Concomitant]
     Active Substance: CALCIUM CARBONATE
     Dosage: 1.5 PILL X 3.5 WK
     Dates: start: 20180401, end: 20180725
  18. TUMS [Concomitant]
     Active Substance: CALCIUM CARBONATE
     Dosage: 2 PILL 1 WK
     Dates: start: 20181016, end: 20181126
  19. TYLENOL EXTRA STRENGTH [Concomitant]
     Active Substance: ACETAMINOPHEN
     Indication: Back pain
     Dosage: 1000 MILLIGRAM X 10TOTAL
     Route: 048
     Dates: start: 20180215, end: 20180511
  20. TYLENOL EXTRA STRENGTH [Concomitant]
     Active Substance: ACETAMINOPHEN
     Dosage: 1000 MILLIGRAM X 3.5
     Route: 048
     Dates: start: 20181016, end: 20181126
  21. TYLENOL EXTRA STRENGTH [Concomitant]
     Active Substance: ACETAMINOPHEN
     Dosage: 1000 MILLIGRAM X 3.5
     Route: 048
     Dates: start: 20180726, end: 20181015

REACTIONS (6)
  - Chlamydial infection [Unknown]
  - Caesarean section [Unknown]
  - Respiratory tract infection [Recovered/Resolved]
  - Nasopharyngitis [Unknown]
  - Dyspepsia [Unknown]
  - Maternal exposure during pregnancy [Unknown]

NARRATIVE: CASE EVENT DATE: 20180327
